FAERS Safety Report 14539523 (Version 1)
Quarter: 2018Q1

REPORT INFORMATION
  Report Type: Spontaneous
  Country: US (occurrence: US)
  Receive Date: 20180216
  Receipt Date: 20180216
  Transmission Date: 20180509
  Serious: Yes (Hospitalization, Other)
  Sender: FDA-Public Use
  Company Number: US-VIIV HEALTHCARE LIMITED-US2018GSK025903

PATIENT
  Sex: Male
  Weight: 66.67 kg

DRUGS (1)
  1. TRIUMEQ [Suspect]
     Active Substance: ABACAVIR SULFATE\DOLUTEGRAVIR SODIUM\LAMIVUDINE

REACTIONS (17)
  - Pancreatitis [Not Recovered/Not Resolved]
  - Rash [Unknown]
  - Insomnia [Unknown]
  - Bile duct obstruction [Unknown]
  - Bile duct stent insertion [Unknown]
  - Lactic acidosis [Unknown]
  - Decreased appetite [Unknown]
  - Vomiting [Unknown]
  - Pyrexia [Unknown]
  - Diarrhoea [Unknown]
  - Compression fracture [Unknown]
  - Weight decreased [Unknown]
  - Blood potassium decreased [Unknown]
  - Abdominal pain upper [Unknown]
  - Osteogenesis imperfecta [Unknown]
  - Pancreatic carcinoma [Not Recovered/Not Resolved]
  - Infection [Unknown]
